FAERS Safety Report 9721337 (Version 2)
Quarter: 2014Q1

REPORT INFORMATION
  Report Type: Spontaneous
  Country: US (occurrence: US)
  Receive Date: 20131129
  Receipt Date: 20140321
  Transmission Date: 20141002
  Serious: Yes (Hospitalization, Other)
  Sender: FDA-Public Use
  Company Number: US-PFIZER INC-2013338203

PATIENT
  Age: 63 Year
  Sex: Female
  Weight: 68 kg

DRUGS (10)
  1. PREMARIN [Suspect]
     Indication: MENOPAUSAL SYMPTOMS
     Dosage: 0.3 MG, 1X/DAY
     Route: 048
  2. PREMARIN [Suspect]
     Dosage: 0.45 MG, 1X/DAY
     Route: 048
  3. PREMARIN [Suspect]
     Dosage: 0.625 MG, 1X/DAY
     Route: 048
  4. PREMARIN [Suspect]
     Dosage: 0.45 MG, 1X/DAY
     Route: 048
  5. LIPITOR [Concomitant]
     Indication: HYPERLIPIDAEMIA
     Dosage: 10 MG, DAILY (H.S)
     Route: 048
  6. LIPITOR [Concomitant]
     Dosage: 20 MG, 1X/DAY (QHS)
     Route: 048
  7. ENABLEX [Concomitant]
     Dosage: 0.7 MG, DAILY
     Route: 048
  8. DETROL LA [Concomitant]
     Dosage: 4 MG, DAILY
     Route: 048
  9. ATIVAN [Concomitant]
     Dosage: 5 MG, (BID, PRN)
     Route: 048
  10. VENTOLIN HFA [Concomitant]
     Dosage: 2 DF, (2 P Q 6 HOURS PRN X 3 MST)
     Route: 048

REACTIONS (28)
  - Back pain [Unknown]
  - Condition aggravated [Unknown]
  - Pain in extremity [Unknown]
  - Hypertonic bladder [Unknown]
  - Muscular weakness [Unknown]
  - Hyperlipidaemia [Unknown]
  - Haemorrhage [Unknown]
  - Hepatocellular injury [Unknown]
  - Liver disorder [Unknown]
  - Hepatic pain [Unknown]
  - Arthralgia [Unknown]
  - Osteoarthritis [Unknown]
  - Intervertebral disc degeneration [Unknown]
  - Renal cyst [Unknown]
  - Dizziness [Unknown]
  - Asthenia [Unknown]
  - Diarrhoea [Unknown]
  - Sinus congestion [Unknown]
  - Folliculitis [Unknown]
  - Upper respiratory tract infection [Unknown]
  - Pleuritic pain [Unknown]
  - Chest discomfort [Unknown]
  - Chest pain [Unknown]
  - Cough [Unknown]
  - Dysuria [Unknown]
  - Micturition urgency [Unknown]
  - Pollakiuria [Unknown]
  - Liver function test abnormal [Unknown]
